FAERS Safety Report 4943523-9 (Version None)
Quarter: 2006Q1

REPORT INFORMATION
  Report Type: 
  Country: None (occurrence: None)
  Receive Date: 20060309
  Receipt Date: 20060227
  Transmission Date: 20060701
  Serious: Yes (Death)
  Sender: FDA-Public Use
  Company Number: 06H-163-0306096-00

PATIENT

DRUGS (1)
  1. MORPHINE SULFATE [Suspect]
     Indication: COMPLETED SUICIDE

REACTIONS (3)
  - CARBON MONOXIDE POISONING [None]
  - COMPLETED SUICIDE [None]
  - OVERDOSE [None]
